FAERS Safety Report 7765332-8 (Version None)
Quarter: 2011Q3

REPORT INFORMATION
  Report Type: 
  Country: None (occurrence: None)
  Receive Date: 20110921
  Receipt Date: 20110906
  Transmission Date: 20111222
  Serious: Yes (Other)
  Sender: FDA-Public Use
  Company Number: US-BAYER-2011-084235

PATIENT
  Age: 69 Year
  Sex: Female
  Weight: 49 kg

DRUGS (4)
  1. ASPIRIN [Suspect]
     Indication: ANGINA PECTORIS
     Dosage: 1 DF, PRN
     Route: 048
  2. HMG COA REDUCTASE INHIBITORS [Concomitant]
  3. ASPIRIN [Concomitant]
  4. THYROID PREPARATIONS [Concomitant]

REACTIONS (1)
  - ANGINA PECTORIS [None]
